FAERS Safety Report 10145720 (Version 1)
Quarter: 2014Q2

REPORT INFORMATION
  Report Type: Spontaneous
  Country: US (occurrence: None)
  Receive Date: 20140429
  Receipt Date: 20140429
  Transmission Date: 20141212
  Serious: Yes (Hospitalization)
  Sender: FDA-Public Use
  Company Number: 2014AP002681

PATIENT
  Age: 51 Year
  Sex: Female
  Weight: 51 kg

DRUGS (2)
  1. FERRIPROX [Suspect]
     Indication: HAEMOCHROMATOSIS
     Route: 048
     Dates: start: 20140412, end: 20140412
  2. FERRIPROX [Suspect]
     Indication: SICKLE CELL ANAEMIA
     Route: 048
     Dates: start: 20140412, end: 20140412

REACTIONS (3)
  - Lung infection [None]
  - Pain in extremity [None]
  - Vomiting [None]
